FAERS Safety Report 15745274 (Version 3)
Quarter: 2018Q4

REPORT INFORMATION
  Report Type: Report from Study
  Country: US (occurrence: US)
  Receive Date: 20181220
  Receipt Date: 20181221
  Transmission Date: 20190205
  Serious: Yes (Hospitalization)
  Sender: FDA-Public Use
  Company Number: US-SA-2018SA342945

PATIENT
  Sex: Female

DRUGS (1)
  1. INSULIN GLARGINE [Suspect]
     Active Substance: INSULIN GLARGINE
     Dosage: UNK UNK, QD

REACTIONS (5)
  - Blood glucose decreased [Unknown]
  - Device operational issue [Unknown]
  - Product dose omission [Unknown]
  - Product storage error [Unknown]
  - Hospitalisation [Unknown]
